FAERS Safety Report 17163756 (Version 1)
Quarter: 2019Q4

REPORT INFORMATION
  Report Type: Spontaneous
  Country: US (occurrence: US)
  Receive Date: 20191125
  Receipt Date: 20191125
  Transmission Date: 20200122
  Serious: Yes (Hospitalization)
  Sender: FDA-Public Use
  Company Number: None

PATIENT
  Age: 35 Year
  Sex: Female

DRUGS (12)
  1. SYMBICORT [Concomitant]
     Active Substance: BUDESONIDE\FORMOTEROL FUMARATE DIHYDRATE
  2. FLONASE [Concomitant]
     Active Substance: FLUTICASONE PROPIONATE
  3. LANTUS [Concomitant]
     Active Substance: INSULIN GLARGINE
  4. ETHAMBUTOL [Concomitant]
     Active Substance: ETHAMBUTOL HYDROCHLORIDE
  5. AZITHROMYCIN ANHYDROUS. [Concomitant]
     Active Substance: AZITHROMYCIN ANHYDROUS
  6. ZENPEP [Suspect]
     Active Substance: PANCRELIPASE AMYLASE\PANCRELIPASE LIPASE\PANCRELIPASE PROTEASE
     Indication: CYSTIC FIBROSIS
     Route: 048
  7. PULMOZYME [Concomitant]
     Active Substance: DORNASE ALFA
  8. TRIKAFTA [Concomitant]
     Active Substance: ELEXACAFTOR\IVACAFTOR\TEZACAFTOR
  9. ALBUTEROL. [Concomitant]
     Active Substance: ALBUTEROL
  10. AQUADEK [Concomitant]
  11. ARIKAYCE [Concomitant]
     Active Substance: AMIKACIN
  12. RIFAMPIN. [Concomitant]
     Active Substance: RIFAMPIN

REACTIONS (1)
  - Haemoptysis [None]

NARRATIVE: CASE EVENT DATE: 201910
